FAERS Safety Report 8445496-3 (Version None)
Quarter: 2012Q2

REPORT INFORMATION
  Report Type: 
  Country: None (occurrence: None)
  Receive Date: 20120323
  Receipt Date: 20111114
  Transmission Date: 20120825
  Serious: Yes (Other)
  Sender: FDA-Public Use
  Company Number: 163-21880-11103416

PATIENT
  Age: 76 Year
  Sex: Male
  Weight: 67.6 kg

DRUGS (1)
  1. REVLIMID [Suspect]
     Indication: MYELODYSPLASTIC SYNDROME
     Dosage: 10 MG, 1 IN 1 D, PO
     Route: 048
     Dates: start: 20110927

REACTIONS (2)
  - DRUG INEFFECTIVE [None]
  - FULL BLOOD COUNT DECREASED [None]
